FAERS Safety Report 4523190-9 (Version None)
Quarter: 2004Q4

REPORT INFORMATION
  Report Type: 
  Country: None (occurrence: None)
  Receive Date: 20041129
  Receipt Date: 20041116
  Transmission Date: 20050328
  Serious: Yes (Disabling)
  Sender: FDA-Public Use
  Company Number: 2004-03711

PATIENT
  Age: 75 Year
  Sex: Male

DRUGS (5)
  1. IMMUCYST (BCG - IT (CONNAUGHT)) [Suspect]
     Indication: BLADDER CANCER
     Dates: start: 20040301, end: 20040401
  2. ODRIK [Concomitant]
  3. ALDACTONE [Concomitant]
  4. LASILIX [Concomitant]
  5. BISOPROLOL FUMARATE [Concomitant]

REACTIONS (6)
  - ANAEMIA MACROCYTIC [None]
  - ASTHENIA [None]
  - CARDIAC FAILURE [None]
  - INFLAMMATION [None]
  - LEUKOCYTOSIS [None]
  - OEDEMA [None]
